FAERS Safety Report 8474259-8 (Version None)
Quarter: 2012Q2

REPORT INFORMATION
  Report Type: 
  Country: None (occurrence: None)
  Receive Date: 20120622
  Receipt Date: 20120622
  Transmission Date: 20120825
  Serious: Yes (Hospitalization)
  Sender: FDA-Public Use
  Company Number: None

PATIENT
  Age: 79 Year
  Sex: Female
  Weight: 60.8727 kg

DRUGS (8)
  1. ASPIRIN 81 MG PO DAILY [Concomitant]
  2. PROMETHAZINE 25 MG PO Q6H PRN N/V [Concomitant]
  3. AMLODIPINE 10 MG PO DAILY [Concomitant]
  4. TRAMADOL 50 MG PO Q12H PRN PAIN [Concomitant]
  5. LEVOTHYROXINE 0.1 MG PO DAILY [Concomitant]
  6. LORAZEPAM 2 MG PO QHS [Concomitant]
  7. RIVAROXABAN 15 MG JANSSEN [Suspect]
     Indication: ATRIAL FIBRILLATION
     Dosage: 15 MG QDAY PO
     Route: 048
     Dates: start: 20120606, end: 20120620
  8. HYDROXYZINE 25 MG PO Q6H PRN ITCHING [Concomitant]

REACTIONS (1)
  - LOWER GASTROINTESTINAL HAEMORRHAGE [None]
